FAERS Safety Report 6139446-2 (Version None)
Quarter: 2009Q1

REPORT INFORMATION
  Report Type: 
  Country: None (occurrence: None)
  Receive Date: 20090324
  Receipt Date: 20090317
  Transmission Date: 20090719
  Serious: Yes (Other)
  Sender: FDA-Public Use
  Company Number: 1-17547577

PATIENT
  Age: 53 Year
  Sex: Female
  Weight: 70.7611 kg

DRUGS (4)
  1. FENTANYL-75 [Suspect]
     Indication: COMPLEX REGIONAL PAIN SYNDROME
     Dosage: 1 PATCH EVERY 72 HRS, TRANSDERMAL
     Route: 062
     Dates: start: 20070101, end: 20070101
  2. OXYCONTIN (OXYCODONE HYDROCHLORIDE) 15 MG [Concomitant]
  3. ASPIRIN [Concomitant]
  4. ALBUTEROL [Concomitant]

REACTIONS (19)
  - APPLICATION SITE IRRITATION [None]
  - APPLICATION SITE VESICLES [None]
  - BREATH HOLDING [None]
  - COLD SWEAT [None]
  - DIZZINESS [None]
  - DYSGEUSIA [None]
  - DYSPNOEA [None]
  - EMOTIONAL DISTRESS [None]
  - ERYTHEMA [None]
  - FLUSHING [None]
  - HEART RATE INCREASED [None]
  - HEART RATE IRREGULAR [None]
  - MIOSIS [None]
  - MOVEMENT DISORDER [None]
  - PARALYSIS [None]
  - PRODUCT QUALITY ISSUE [None]
  - SEDATION [None]
  - SKIN DISCOLOURATION [None]
  - SLUGGISHNESS [None]
